FAERS Safety Report 8849641 (Version 1)
Quarter: 2012Q4

REPORT INFORMATION
  Report Type: Spontaneous
  Country: US (occurrence: None)
  Receive Date: 20121018
  Receipt Date: 20121018
  Transmission Date: 20130627
  Serious: No
  Sender: FDA-Public Use
  Company Number: None

PATIENT

DRUGS (2)
  1. MODAFINIL [Suspect]
     Indication: PHASE-SHIFT DISRUPTION OF 24-HOUR SLEEP-WAKE CYCLE
     Route: 048
     Dates: start: 20120901, end: 20121002
  2. MODAFINIL [Suspect]
     Indication: OBSTRUCTIVE SLEEP APNEA SYNDROME
     Route: 048
     Dates: start: 20120901, end: 20121002

REACTIONS (3)
  - Product substitution issue [None]
  - Product quality issue [None]
  - Drug effect decreased [None]
